FAERS Safety Report 6227438-4 (Version None)
Quarter: 2009Q2

REPORT INFORMATION
  Report Type: 
  Country: None (occurrence: None)
  Receive Date: 20090612
  Receipt Date: 20090408
  Transmission Date: 20091009
  Serious: Yes (Other)
  Sender: FDA-Public Use
  Company Number: US-PFIZER INC-2006029216

PATIENT
  Sex: Female
  Weight: 95.238 kg

DRUGS (4)
  1. PROVERA [Suspect]
     Indication: HORMONE REPLACEMENT THERAPY
     Dosage: 10 MG, UNK
     Route: 048
     Dates: start: 19920101, end: 20000301
  2. ESTRACE [Suspect]
     Indication: HORMONE REPLACEMENT THERAPY
     Dosage: 1 MG, UNK
     Dates: start: 19920101, end: 20000301
  3. PREVACID [Concomitant]
     Indication: GASTROOESOPHAGEAL REFLUX DISEASE
     Dosage: UNK
     Dates: start: 20000101
  4. IONAMIN [Concomitant]
     Indication: WEIGHT CONTROL
     Dosage: UNK
     Dates: start: 19950301, end: 19950101

REACTIONS (1)
  - BREAST CANCER [None]
